FAERS Safety Report 9022574 (Version 1)
Quarter: 2013Q1

REPORT INFORMATION
  Report Type: Spontaneous
  Country: US (occurrence: US)
  Receive Date: 20130118
  Receipt Date: 20130118
  Transmission Date: 20140127
  Serious: No
  Sender: FDA-Public Use
  Company Number: US-GLAXOSMITHKLINE-A0986989A

PATIENT
  Age: 82 Year
  Sex: Male
  Weight: 77.3 kg

DRUGS (17)
  1. PROMACTA [Suspect]
     Indication: PRODUCT USED FOR UNKNOWN INDICATION
     Dosage: 50MG PER DAY
     Route: 048
  2. PREDNISONE [Concomitant]
     Route: 048
  3. SIMVASTATIN [Concomitant]
     Route: 048
  4. DESMOPRESSIN [Concomitant]
     Route: 048
  5. LEVOTHYROXIN [Concomitant]
     Route: 048
  6. VITAMIN D [Concomitant]
     Route: 048
  7. LEXAPRO [Concomitant]
     Route: 048
  8. VITAMIN B12 [Concomitant]
     Route: 048
  9. IRON [Concomitant]
     Route: 048
  10. PRESERVISION [Concomitant]
     Route: 048
  11. UNSPECIFIED MEDICATION [Concomitant]
     Route: 048
  12. CALCIUM + D [Concomitant]
     Route: 048
  13. COLACE [Concomitant]
     Route: 048
  14. INTEGRA PLUS [Concomitant]
     Route: 048
  15. COENZYME Q10 [Concomitant]
     Route: 048
  16. OMEGA 3 [Concomitant]
     Route: 048
  17. MAGNESIUM [Concomitant]
     Route: 048

REACTIONS (2)
  - Joint swelling [Unknown]
  - Weight increased [Unknown]
